FAERS Safety Report 15119962 (Version 3)
Quarter: 2018Q4

REPORT INFORMATION
  Report Type: Spontaneous
  Country: AU (occurrence: AU)
  Receive Date: 20180709
  Receipt Date: 20181012
  Transmission Date: 20190204
  Serious: Yes (Other)
  Sender: FDA-Public Use
  Company Number: PHHY2018AU033402

PATIENT
  Age: 21 Year
  Sex: Female

DRUGS (13)
  1. METHOTREXATE. [Suspect]
     Active Substance: METHOTREXATE
     Dosage: 10-20MG, QW
     Route: 048
     Dates: start: 201712, end: 201803
  2. MYCOPHENOLATE MOFETIL. [Suspect]
     Active Substance: MYCOPHENOLATE MOFETIL
     Indication: PROGRESSIVE FACIAL HEMIATROPHY
     Dosage: 1000 MG, BID
     Route: 048
     Dates: start: 201509, end: 201611
  3. AZATHIOPRINE. [Suspect]
     Active Substance: AZATHIOPRINE
     Indication: PROGRESSIVE FACIAL HEMIATROPHY
     Dosage: 150 MG, UNK
     Route: 048
     Dates: start: 201710, end: 201711
  4. CICLOSPORIN [Suspect]
     Active Substance: CYCLOSPORINE
     Indication: PRODUCT USED FOR UNKNOWN INDICATION
     Dosage: UNK
     Route: 065
  5. PROLIA [Concomitant]
     Active Substance: DENOSUMAB
     Indication: PRODUCT USED FOR UNKNOWN INDICATION
     Dosage: 6 MONTHLY
     Route: 065
  6. VITAMIN B COMPLEX/B12 [Concomitant]
     Indication: PRODUCT USED FOR UNKNOWN INDICATION
     Dosage: UNK, 3 MONTHLY
     Route: 065
  7. HYDROXYCHLOROQUINE [Suspect]
     Active Substance: HYDROXYCHLOROQUINE
     Indication: PRODUCT USED FOR UNKNOWN INDICATION
     Dosage: UNK
     Route: 065
  8. SUMATRIPTAN. [Concomitant]
     Active Substance: SUMATRIPTAN
     Indication: PRODUCT USED FOR UNKNOWN INDICATION
     Dosage: UNK UNK, PRN
     Route: 065
  9. METHOTREXATE. [Suspect]
     Active Substance: METHOTREXATE
     Indication: PROGRESSIVE FACIAL HEMIATROPHY
     Dosage: 10-20MG, QW
     Route: 048
     Dates: start: 201507, end: 201509
  10. CALTRATE [Concomitant]
     Active Substance: CALCIUM CARBONATE
     Indication: PRODUCT USED FOR UNKNOWN INDICATION
     Dosage: 2 OT, BID
     Route: 065
  11. METHOTREXATE. [Suspect]
     Active Substance: METHOTREXATE
     Dosage: 10-20MG, QW
     Route: 048
     Dates: start: 201612, end: 201707
  12. PREDNISONE. [Concomitant]
     Active Substance: PREDNISONE
     Indication: PRODUCT USED FOR UNKNOWN INDICATION
     Dosage: UP TO 75 MG, QD
     Route: 065
  13. TOPIRAMATE. [Concomitant]
     Active Substance: TOPIRAMATE
     Indication: PRODUCT USED FOR UNKNOWN INDICATION
     Dosage: 50 MG, BID
     Route: 065

REACTIONS (11)
  - Nausea [Unknown]
  - Drug-induced liver injury [Unknown]
  - Alanine aminotransferase increased [Unknown]
  - Hepatotoxicity [Recovering/Resolving]
  - Vomiting [Unknown]
  - Tinnitus [Unknown]
  - Aspartate aminotransferase increased [Unknown]
  - Dizziness [Unknown]
  - Abdominal pain [Unknown]
  - Disease progression [Not Recovered/Not Resolved]
  - Gamma-glutamyltransferase increased [Unknown]

NARRATIVE: CASE EVENT DATE: 20150813
